FAERS Safety Report 7449309-8 (Version None)
Quarter: 2011Q2

REPORT INFORMATION
  Report Type: 
  Country: None (occurrence: None)
  Receive Date: 20110502
  Receipt Date: 20110418
  Transmission Date: 20111010
  Serious: No
  Sender: FDA-Public Use
  Company Number: US-BIOGENIDEC-2011BI015065

PATIENT
  Age: 48 Year
  Sex: Female

DRUGS (5)
  1. AVONEX [Concomitant]
     Route: 030
     Dates: start: 20060801
  2. TYSABRI [Suspect]
     Indication: MULTIPLE SCLEROSIS
     Route: 042
     Dates: start: 20101201
  3. AVONEX [Concomitant]
     Indication: MULTIPLE SCLEROSIS
     Route: 030
     Dates: start: 20050801
  4. AVONEX [Concomitant]
     Route: 030
     Dates: start: 20100701
  5. AVONEX [Concomitant]
     Route: 030

REACTIONS (2)
  - DYSSTASIA [None]
  - CYSTITIS [None]
